FAERS Safety Report 7673571-X (Version None)
Quarter: 2011Q3

REPORT INFORMATION
  Report Type: 
  Country: None (occurrence: None)
  Receive Date: 20110804
  Receipt Date: 20110720
  Transmission Date: 20111222
  Serious: Yes (Hospitalization, Disabling, Other)
  Sender: FDA-Public Use
  Company Number: 2011MA009188

PATIENT
  Age: 22 Year
  Sex: Male

DRUGS (2)
  1. PHENOBARBITAL TAB [Suspect]
     Indication: OVERDOSE
     Dosage: IV
     Route: 042
  2. DIAMORPHINE (DIAMORPHINE) [Suspect]
     Indication: OVERDOSE
     Dosage: IV
     Route: 042

REACTIONS (5)
  - MULTIPLE DRUG OVERDOSE [None]
  - CEREBELLAR ATROPHY [None]
  - COMA [None]
  - BRACHIAL PLEXOPATHY [None]
  - CEREBRAL ATROPHY [None]
